FAERS Safety Report 6613267-6 (Version None)
Quarter: 2010Q1

REPORT INFORMATION
  Report Type: 
  Country: None (occurrence: None)
  Receive Date: 20100304
  Receipt Date: 20100222
  Transmission Date: 20100710
  Serious: Yes (Hospitalization)
  Sender: FDA-Public Use
  Company Number: US-BRISTOL-MYERS SQUIBB COMPANY-14987317

PATIENT
  Age: 58 Year
  Sex: Male

DRUGS (8)
  1. AMPICILLIN [Suspect]
  2. CIPROFLOXACIN [Suspect]
     Dosage: 500MG * 2
  3. KETOROLAC TROMETHAMINE [Suspect]
     Indication: PROCEDURAL PAIN
  4. KETOROLAC TROMETHAMINE [Suspect]
     Indication: PROCEDURAL NAUSEA
  5. GENTAMICIN [Suspect]
  6. PROMETHAZINE [Suspect]
     Indication: PROCEDURAL PAIN
     Dosage: 12.5MG THREE DOSES
  7. PROMETHAZINE [Suspect]
     Indication: PROCEDURAL NAUSEA
     Dosage: 12.5MG THREE DOSES
  8. MULTI-VITAMIN [Concomitant]

REACTIONS (2)
  - NEPHRITIS ALLERGIC [None]
  - URETHRAL HAEMORRHAGE [None]
